FAERS Safety Report 7834114-0 (Version None)
Quarter: 2011Q4

REPORT INFORMATION
  Report Type: 
  Country: None (occurrence: None)
  Receive Date: 20111024
  Receipt Date: 20111010
  Transmission Date: 20120403
  Serious: Yes (Other)
  Sender: FDA-Public Use
  Company Number: PHHY2011IT85026

PATIENT
  Age: 71 Year
  Sex: Male

DRUGS (4)
  1. TASIGNA [Suspect]
     Dosage: 800 MG, DAILY
     Route: 048
  2. CEPHALOSPORIN [Concomitant]
     Dosage: UNK UKN, UNK
  3. ROSUVASTATIN [Concomitant]
     Dosage: UNK UKN, UNK
  4. TASIGNA [Suspect]
     Indication: CHRONIC MYELOID LEUKAEMIA
     Dosage: 800 MG, DAILY
     Route: 048
     Dates: start: 20101108, end: 20110812

REACTIONS (1)
  - ACUTE CORONARY SYNDROME [None]
